FAERS Safety Report 23220613 (Version 1)
Quarter: 2023Q4

REPORT INFORMATION
  Report Type: Spontaneous
  Country: GR (occurrence: GR)
  Receive Date: 20231123
  Receipt Date: 20231123
  Transmission Date: 20240110
  Serious: Yes (Other)
  Sender: FDA-Public Use
  Company Number: GR-PFIZER INC-PV202200054265

PATIENT
  Age: 45 Year
  Sex: Female

DRUGS (5)
  1. DOCETAXEL [Suspect]
     Active Substance: DOCETAXEL\DOCETAXEL ANHYDROUS
     Indication: HER2 positive breast cancer
     Dosage: UNK
     Route: 065
     Dates: end: 202009
  2. PERTUZUMAB [Suspect]
     Active Substance: PERTUZUMAB
     Indication: HER2 negative breast cancer
     Dosage: UNK, (MAINTENANCE THERAPY)
     Route: 065
     Dates: end: 202009
  3. PERTUZUMAB [Suspect]
     Active Substance: PERTUZUMAB
     Dosage: UNK, 6 CYCLES
     Route: 065
     Dates: end: 202009
  4. TRASTUZUMAB [Suspect]
     Active Substance: TRASTUZUMAB
     Dosage: UNK, (MAINTENANCE THERAPY)
     Route: 065
     Dates: end: 202009
  5. TRASTUZUMAB [Suspect]
     Active Substance: TRASTUZUMAB
     Indication: HER2 negative breast cancer
     Dosage: UNK, 6 CYCLES
     Route: 065

REACTIONS (1)
  - Sarcoidosis [Unknown]
